FAERS Safety Report 4999718-1 (Version None)
Quarter: 2006Q2

REPORT INFORMATION
  Report Type: 
  Country: None (occurrence: None)
  Receive Date: 20060509
  Receipt Date: 20060503
  Transmission Date: 20061013
  Serious: Yes (Other)
  Sender: FDA-Public Use
  Company Number: 2006-DE-02221GD

PATIENT
  Age: 12 Year
  Sex: Female

DRUGS (10)
  1. DEXAMETHASONE [Suspect]
     Indication: PNEUMOCYSTIS JIROVECI PNEUMONIA
     Dosage: 4 MG IV EVERY 6 H THEN WEANED OVER 7 DAYS (EVERY 6 H), IV
     Route: 042
  2. FLUTICASONE/SALMETEROL (GALENIC/FLUTICASONE/SALMETEROL/) [Suspect]
     Indication: ASTHMA
     Dosage: SEE IMAGE, IH
     Route: 055
  3. KALETRA [Suspect]
     Indication: HIV INFECTION
     Dosage: LOPINAVIR 532 MG/RITONAVIR 134 MG (BID)
  4. FLUCONAZOLE [Suspect]
     Indication: ORAL CANDIDIASIS
     Dosage: 200 MG (D), PO
     Route: 048
  5. PREDNISOLONE [Suspect]
     Indication: ASTHMA
  6. SALBUTAMOL (SALBUTAMOL) (SALBUTAMOL SULPHATE) [Concomitant]
  7. SULFA-TRIM (CO-TRIMOXAZOLE) (SULFAMETHOXAZOL, TRIMETHOPRIM) [Concomitant]
  8. LAMIVUDINE/ZIDOVUDINE (ZIDOVUDINE W/LAMIVUDINE) [Concomitant]
  9. MONTELUKAST (MONTELUKAST) [Concomitant]
  10. AZITHROMYCIN [Concomitant]

REACTIONS (11)
  - ADRENAL INSUFFICIENCY [None]
  - ADRENAL SUPPRESSION [None]
  - ASTHMA [None]
  - CANDIDIASIS [None]
  - CONDITION AGGRAVATED [None]
  - CUSHING'S SYNDROME [None]
  - DRUG LEVEL BELOW THERAPEUTIC [None]
  - HIRSUTISM [None]
  - INCREASED TENDENCY TO BRUISE [None]
  - LIVEDO RETICULARIS [None]
  - WEIGHT FLUCTUATION [None]
